FAERS Safety Report 17037743 (Version 2)
Quarter: 2020Q4

REPORT INFORMATION
  Report Type: Report from Study
  Country: CO (occurrence: CO)
  Receive Date: 20191115
  Receipt Date: 20201015
  Transmission Date: 20210113
  Serious: Yes (Other)
  Sender: FDA-Public Use
  Company Number: PHHY2019CO170473

PATIENT
  Sex: Male

DRUGS (2)
  1. TASIGNA [Suspect]
     Active Substance: NILOTINIB
     Indication: CHRONIC MYELOID LEUKAEMIA
     Dosage: 600 MG, QD
     Route: 048
  2. TASIGNA [Suspect]
     Active Substance: NILOTINIB
     Dosage: 300 MG, BID (EVERY 12 HOURS)
     Route: 048

REACTIONS (8)
  - Chronic myeloid leukaemia [Unknown]
  - Weight decreased [Unknown]
  - Splenomegaly [Unknown]
  - Malaise [Unknown]
  - Malignant neoplasm progression [Unknown]
  - General physical health deterioration [Unknown]
  - Investigation abnormal [Unknown]
  - Inappropriate schedule of product administration [Unknown]
